FAERS Safety Report 8811898 (Version 1)
Quarter: 2012Q4

REPORT INFORMATION
  Report Type: 
  Country: US (occurrence: US)
  Receive Date: 20120927
  Receipt Date: 20120927
  Transmission Date: 20130627
  Serious: Yes (Other)
  Sender: FDA-Public Use
  Company Number: US-BRISTOL-MYERS SQUIBB COMPANY-16975443

PATIENT
  Age: 60 Year
  Sex: Female

DRUGS (4)
  1. ARIPIPRAZOLE [Suspect]
     Indication: MAJOR DEPRESSION
     Dates: start: 201102
  2. ARIPIPRAZOLE [Interacting]
     Indication: ANXIETY
     Dates: start: 201102
  3. LAMOTRIGINE [Interacting]
     Indication: MAJOR DEPRESSION
  4. LAMOTRIGINE [Interacting]
     Indication: GENERALISED ANXIETY DISORDER

REACTIONS (2)
  - Drug interaction [Recovered/Resolved]
  - Intention tremor [Recovered/Resolved]
